FAERS Safety Report 16991831 (Version 7)
Quarter: 2019Q4

REPORT INFORMATION
  Report Type: Report from Study
  Country: None (occurrence: ES)
  Receive Date: 20191104
  Receipt Date: 20191203
  Transmission Date: 20200122
  Serious: Yes (Death, Hospitalization, Other)
  Sender: FDA-Public Use
  Company Number: ES-ABBVIE-19K-144-2985670-00

PATIENT
  Age: 81 Year
  Sex: Female
  Weight: 52 kg

DRUGS (4)
  1. DUODOPA [Suspect]
     Active Substance: CARBIDOPA\LEVODOPA
     Dosage: INCREASE CONTINUOUS DOSE FROM 3.00 TO 3.20
     Route: 050
     Dates: start: 20191029, end: 20191030
  2. DUODOPA [Suspect]
     Active Substance: CARBIDOPA\LEVODOPA
     Dosage: DOSE INCREASED
     Route: 050
     Dates: start: 20191108, end: 201911
  3. DUODOPA [Suspect]
     Active Substance: CARBIDOPA\LEVODOPA
     Dosage: INCREASE CONTINUOUS DOSE AGAIN FROM 3.20 TO 3.4
     Route: 050
     Dates: start: 20191030, end: 20191108
  4. DUODOPA [Suspect]
     Active Substance: CARBIDOPA\LEVODOPA
     Indication: PARKINSON^S DISEASE
     Dosage: 20 MG/ML 5 MG/ML
     Route: 050
     Dates: start: 20151015, end: 20191029

REACTIONS (14)
  - Cardiac failure [Fatal]
  - Dysstasia [Not Recovered/Not Resolved]
  - Asthenia [Not Recovered/Not Resolved]
  - Epilepsy [Recovering/Resolving]
  - Musculoskeletal stiffness [Recovering/Resolving]
  - On and off phenomenon [Unknown]
  - Parkinsonian crisis [Recovering/Resolving]
  - Seizure [Not Recovered/Not Resolved]
  - Fatigue [Not Recovered/Not Resolved]
  - Therapeutic product effect delayed [Unknown]
  - Stoma site discharge [Not Recovered/Not Resolved]
  - Urinary tract infection [Recovering/Resolving]
  - Tremor [Not Recovered/Not Resolved]
  - Condition aggravated [Fatal]

NARRATIVE: CASE EVENT DATE: 2019
